FAERS Safety Report 6814681-6 (Version None)
Quarter: 2010Q3

REPORT INFORMATION
  Report Type: 
  Country: None (occurrence: None)
  Receive Date: 20100702
  Receipt Date: 20100628
  Transmission Date: 20110219
  Serious: Yes (Hospitalization)
  Sender: FDA-Public Use
  Company Number: B0662689A

PATIENT
  Sex: Male

DRUGS (6)
  1. DERMOVAL [Suspect]
     Indication: BONE MARROW TRANSPLANT REJECTION
     Dosage: 3UNIT THREE TIMES PER DAY
     Route: 061
     Dates: start: 20090101, end: 20100317
  2. DIPROLENE [Suspect]
     Indication: BONE MARROW TRANSPLANT REJECTION
     Route: 061
     Dates: start: 20090101, end: 20100317
  3. SEROPLEX [Concomitant]
     Route: 065
  4. URBANYL [Concomitant]
     Route: 065
  5. BACTRIM [Concomitant]
     Route: 065
  6. EFFERALGAN [Concomitant]
     Route: 065

REACTIONS (1)
  - AMYOTROPHY [None]
